FAERS Safety Report 18089509 (Version 1)
Quarter: 2020Q3

REPORT INFORMATION
  Report Type: Spontaneous
  Country: FR (occurrence: FR)
  Receive Date: 20200730
  Receipt Date: 20200730
  Transmission Date: 20201103
  Serious: Yes (Hospitalization, Other)
  Sender: FDA-Public Use
  Company Number: FR-ASTELLAS-2020US024790

PATIENT
  Age: 69 Year
  Sex: Female

DRUGS (3)
  1. LOVENOX [LEVOFLOXACIN] [Suspect]
     Active Substance: LEVOFLOXACIN
     Indication: PRODUCT USED FOR UNKNOWN INDICATION
     Dosage: UNK UNK, UNKNOWN FREQ.
     Route: 065
  2. XOSPATA [Suspect]
     Active Substance: GILTERITINIB
     Indication: ACUTE MYELOID LEUKAEMIA
     Route: 048
     Dates: start: 20200629, end: 20200717
  3. VIDAZA [Suspect]
     Active Substance: AZACITIDINE
     Indication: PRODUCT USED FOR UNKNOWN INDICATION
     Route: 065
     Dates: start: 20200629, end: 20200701

REACTIONS (7)
  - Bronchopulmonary aspergillosis [Recovering/Resolving]
  - Pseudomonal sepsis [Recovering/Resolving]
  - Product use issue [Unknown]
  - Liver function test abnormal [Recovering/Resolving]
  - Intra-abdominal haematoma [Recovering/Resolving]
  - Thrombosis [Recovering/Resolving]
  - Thrombocytopenia [Recovering/Resolving]

NARRATIVE: CASE EVENT DATE: 20200702
